FAERS Safety Report 10028258 (Version 4)
Quarter: 2014Q2

REPORT INFORMATION
  Report Type: Spontaneous
  Country: US (occurrence: None)
  Receive Date: 20140307
  Receipt Date: 20140627
  Transmission Date: 20141212
  Serious: Yes (Hospitalization, Other)
  Sender: FDA-Public Use
  Company Number: 2014-US-002598

PATIENT
  Age: 58 Year
  Sex: Female
  Weight: 56.7 kg

DRUGS (2)
  1. XYREM [Suspect]
     Indication: NARCOLEPSY
     Route: 048
     Dates: start: 20140224, end: 201402
  2. VYVANSE (LISDEXAMFETAMINE MESILATE) [Concomitant]

REACTIONS (5)
  - Cholelithiasis [None]
  - Pancreatitis [None]
  - Hypoaesthesia oral [None]
  - Laboratory test abnormal [None]
  - Cholecystectomy [None]
